FAERS Safety Report 4628189-X (Version None)
Quarter: 2005Q2

REPORT INFORMATION
  Report Type: 
  Country: None (occurrence: None)
  Receive Date: 20050401
  Receipt Date: 20050309
  Transmission Date: 20051028
  Serious: Yes (Hospitalization)
  Sender: FDA-Public Use
  Company Number: 2005031008

PATIENT
  Age: 56 Year
  Sex: Female
  Weight: 95.2554 kg

DRUGS (5)
  1. SULFASALAZINE [Suspect]
     Indication: RHEUMATOID ARTHRITIS
     Dosage: 3 GRAM (1 GRAM, 3 IN 1 D), ORAL
     Route: 048
     Dates: start: 20040101, end: 20050201
  2. LANSOPRAZOLE [Concomitant]
  3. HORMONIN (ESTRADIOL, ESTRIOL, ESTRONE) [Concomitant]
  4. THIAMINE (THIAMINE) [Concomitant]
  5. VITAMIN B (VITAMIN B) [Concomitant]

REACTIONS (5)
  - COORDINATION ABNORMAL [None]
  - DIARRHOEA [None]
  - DIZZINESS [None]
  - NYSTAGMUS [None]
  - VISION BLURRED [None]
